FAERS Safety Report 22621806 (Version 2)
Quarter: 2023Q4

REPORT INFORMATION
  Report Type: Other
  Country: CA (occurrence: None)
  Receive Date: 20230620
  Receipt Date: 20231219
  Transmission Date: 20240109
  Serious: No
  Sender: FDA-Public Use
  Company Number: CA-ROCHE-3122807

PATIENT
  Age: 40 Year
  Sex: Female

DRUGS (5)
  1. OCREVUS [Suspect]
     Active Substance: OCRELIZUMAB
     Indication: Relapsing-remitting multiple sclerosis
     Dosage: THEN 600 MG EVERY 6 MONTH
     Route: 042
     Dates: start: 20220615
  2. BENADRYL [Concomitant]
     Active Substance: DIPHENHYDRAMINE HYDROCHLORIDE
  3. GABAPENTIN [Concomitant]
     Active Substance: GABAPENTIN
  4. CELEXA [Concomitant]
     Active Substance: CITALOPRAM HYDROBROMIDE
  5. LORAZEPAM [Concomitant]
     Active Substance: LORAZEPAM

REACTIONS (13)
  - Infusion related reaction [Recovered/Resolved]
  - Paraesthesia [Unknown]
  - Depression [Unknown]
  - Muscle spasms [Unknown]
  - Therapeutic product effect decreased [Unknown]
  - Headache [Unknown]
  - Anxiety [Unknown]
  - Musculoskeletal stiffness [Unknown]
  - Joint stiffness [Not Recovered/Not Resolved]
  - Oral herpes [Not Recovered/Not Resolved]
  - Photophobia [Recovering/Resolving]
  - Migraine [Recovering/Resolving]
  - Infusion related reaction [Recovered/Resolved]

NARRATIVE: CASE EVENT DATE: 20220615
